FAERS Safety Report 19641559 (Version 2)
Quarter: 2021Q3

REPORT INFORMATION
  Report Type: Spontaneous
  Country: US (occurrence: US)
  Receive Date: 20210731
  Receipt Date: 20210913
  Transmission Date: 20211014
  Serious: No
  Sender: FDA-Public Use
  Company Number: US-JNJFOC-20210750779

PATIENT
  Age: 38 Year
  Sex: Female
  Weight: 63.56 kg

DRUGS (4)
  1. LOMOTIL [Concomitant]
     Active Substance: ATROPINE SULFATE\DIPHENOXYLATE HYDROCHLORIDE
     Route: 065
  2. STELARA [Suspect]
     Active Substance: USTEKINUMAB
     Indication: CROHN^S DISEASE
     Route: 058
  3. OMEPRAZOLE. [Concomitant]
     Active Substance: OMEPRAZOLE
     Route: 065
  4. STELARA [Suspect]
     Active Substance: USTEKINUMAB

REACTIONS (7)
  - Nail bed inflammation [Unknown]
  - Inflammation [Unknown]
  - Discomfort [Unknown]
  - Rash [Unknown]
  - Peripheral swelling [Unknown]
  - Therapeutic product effect decreased [Unknown]
  - Ileostomy [Unknown]
